FAERS Safety Report 8207751-1 (Version None)
Quarter: 2012Q1

REPORT INFORMATION
  Report Type: 
  Country: None (occurrence: None)
  Receive Date: 20120313
  Receipt Date: 20120313
  Transmission Date: 20120608
  Serious: Yes (Hospitalization)
  Sender: FDA-Public Use
  Company Number: None

PATIENT
  Age: 30 Year
  Sex: Female
  Weight: 49.5 kg

DRUGS (1)
  1. CLONAZEPAM [Suspect]
     Indication: CONVULSION
     Dosage: 0.5 MG EVERY DAY PO
     Route: 048
     Dates: end: 20120222

REACTIONS (5)
  - NAUSEA [None]
  - VOMITING [None]
  - CONFUSIONAL STATE [None]
  - CONVULSION [None]
  - WITHDRAWAL SYNDROME [None]
